FAERS Safety Report 9866915 (Version 1)
Quarter: 2014Q1

REPORT INFORMATION
  Report Type: Spontaneous
  Country: US (occurrence: None)
  Receive Date: 20140131
  Receipt Date: 20140131
  Transmission Date: 20141002
  Serious: Yes (Hospitalization)
  Sender: FDA-Public Use
  Company Number: UTC-044001

PATIENT
  Age: 81 Year
  Sex: Female

DRUGS (1)
  1. TYVASCO [Suspect]
     Indication: PULMONARY ARTERIAL HYPERTENSION
     Dosage: 360 MCG (90 MCG, 4 IN 1 D), INHALATION?
     Dates: start: 20130816

REACTIONS (3)
  - Hip arthroplasty [None]
  - Fall [None]
  - Hip fracture [None]
